FAERS Safety Report 9610932 (Version 1)
Quarter: 2013Q4

REPORT INFORMATION
  Report Type: Spontaneous
  Country: BR (occurrence: BR)
  Receive Date: 20131009
  Receipt Date: 20131009
  Transmission Date: 20140711
  Serious: Yes (Hospitalization)
  Sender: FDA-Public Use
  Company Number: BR-TAKEDA-2013TUS000863

PATIENT
  Sex: 0

DRUGS (1)
  1. DAXAS [Suspect]
     Dosage: UNK
     Route: 048
     Dates: start: 201304, end: 20130911

REACTIONS (2)
  - Unevaluable event [Unknown]
  - Weight decreased [Unknown]
